FAERS Safety Report 6751937-X (Version None)
Quarter: 2010Q2

REPORT INFORMATION
  Report Type: 
  Country: None (occurrence: None)
  Receive Date: 20100526
  Receipt Date: 20100309
  Transmission Date: 20101027
  Serious: No
  Sender: FDA-Public Use
  Company Number: 305386

PATIENT
  Sex: Male

DRUGS (3)
  1. VICTOZA [Suspect]
     Indication: TYPE 2 DIABETES MELLITUS
     Dosage: 0.6 MG, QD, SUBCUTANEOUS ; 1.2 MG, SUBCUTANEOUS ; 0.6 MG, SUBCUTANEOUS
     Route: 058
     Dates: start: 20100201, end: 20100201
  2. VICTOZA [Suspect]
     Indication: TYPE 2 DIABETES MELLITUS
     Dosage: 0.6 MG, QD, SUBCUTANEOUS ; 1.2 MG, SUBCUTANEOUS ; 0.6 MG, SUBCUTANEOUS
     Route: 058
     Dates: start: 20100201, end: 20100301
  3. VICTOZA [Suspect]
     Indication: TYPE 2 DIABETES MELLITUS
     Dosage: 0.6 MG, QD, SUBCUTANEOUS ; 1.2 MG, SUBCUTANEOUS ; 0.6 MG, SUBCUTANEOUS
     Route: 058
     Dates: start: 20100301

REACTIONS (2)
  - ABDOMINAL PAIN [None]
  - WEIGHT DECREASED [None]
